FAERS Safety Report 9876715 (Version 2)
Quarter: 2014Q1

REPORT INFORMATION
  Report Type: Spontaneous
  Country: US (occurrence: US)
  Receive Date: 20140206
  Receipt Date: 20140206
  Transmission Date: 20141002
  Serious: No
  Sender: FDA-Public Use
  Company Number: US-ACORDA-ACO_37718_2013

PATIENT
  Age: 65 Year
  Sex: Female

DRUGS (5)
  1. AMPYRA [Suspect]
     Indication: GAIT DISTURBANCE
     Dosage: 10 MG, BID
     Route: 048
     Dates: start: 20130716, end: 2013
  2. TOVIAZ [Concomitant]
     Indication: AUTOMATIC BLADDER
     Dosage: 8 MG, QD
     Route: 048
     Dates: start: 2012
  3. BETASERON [Concomitant]
     Indication: MULTIPLE SCLEROSIS
     Dosage: 0.25 MG, QOD
     Route: 058
     Dates: start: 2003
  4. FERROUS SULFATE [Concomitant]
     Indication: ANAEMIA
     Dosage: 325 UNK, QD
     Route: 048
  5. PRISTIQ [Concomitant]
     Indication: DEPRESSION
     Dosage: 50 UNK, QD
     Route: 048
     Dates: start: 2012

REACTIONS (3)
  - Asthenia [Unknown]
  - Nausea [Unknown]
  - Headache [Unknown]
